FAERS Safety Report 4822476-8 (Version None)
Quarter: 2005Q4

REPORT INFORMATION
  Report Type: 
  Country: None (occurrence: None)
  Receive Date: 20051103
  Receipt Date: 20051103
  Transmission Date: 20060501
  Serious: No
  Sender: FDA-Public Use
  Company Number: None

PATIENT
  Age: 35 Year
  Sex: Female
  Weight: 57.6068 kg

DRUGS (2)
  1. SUDAFED PE   10MG TABLETS  PFIZER [Suspect]
     Indication: NASAL CONGESTION
     Dosage: 10MG  Q4H  PO
     Route: 048
     Dates: start: 20051013, end: 20051013
  2. SUDAFED 30MG TABLETS  PFIZER [Suspect]
     Dosage: 30MG  Q6H  PO
     Route: 048

REACTIONS (2)
  - MEDICATION ERROR [None]
  - WRONG DRUG ADMINISTERED [None]
